FAERS Safety Report 23065991 (Version 1)
Quarter: 2023Q4

REPORT INFORMATION
  Report Type: Spontaneous
  Country: NL (occurrence: US)
  Receive Date: 20231014
  Receipt Date: 20231014
  Transmission Date: 20240110
  Serious: Yes (Hospitalization, Other)
  Sender: FDA-Public Use
  Company Number: NL-Axellia-004903

PATIENT
  Age: 33 Year
  Sex: Female
  Weight: 56.6 kg

DRUGS (2)
  1. VANCOMYCIN [Suspect]
     Active Substance: VANCOMYCIN
     Indication: Peritoneal dialysis
     Dosage: LOADING DOSE OF 2000 MG VANCOMYCIN, DISSOLVED IN HER STANDARD DWELL VOLUME OF 1500 ML PD SOLUTION
     Route: 033
  2. CALCIUM CHLORIDE\DEXTROSE\MAGNESIUM CHLORIDE\SODIUM CHLORIDE [Concomitant]
     Active Substance: CALCIUM CHLORIDE\DEXTROSE\MAGNESIUM CHLORIDE\SODIUM CHLORIDE
     Route: 033

REACTIONS (2)
  - Vancomycin infusion reaction [Recovering/Resolving]
  - Antibiotic level above therapeutic [Recovered/Resolved]
